FAERS Safety Report 25330886 (Version 1)
Quarter: 2025Q2

REPORT INFORMATION
  Report Type: Spontaneous
  Country: US (occurrence: US)
  Receive Date: 20250519
  Receipt Date: 20250519
  Transmission Date: 20250716
  Serious: Yes (Hospitalization)
  Sender: MYLAN
  Company Number: US-MYLANLABS-2025M1041708

PATIENT
  Sex: Male

DRUGS (8)
  1. SILDENAFIL [Suspect]
     Active Substance: SILDENAFIL
     Indication: Product used for unknown indication
  2. SILDENAFIL [Suspect]
     Active Substance: SILDENAFIL
     Route: 065
  3. SILDENAFIL [Suspect]
     Active Substance: SILDENAFIL
     Route: 065
  4. SILDENAFIL [Suspect]
     Active Substance: SILDENAFIL
  5. TYVASO [Concomitant]
     Active Substance: TREPROSTINIL
     Indication: Pulmonary arterial hypertension
     Dosage: 3 DOSAGE FORM, TID
     Dates: start: 20250512, end: 20250512
  6. TYVASO [Concomitant]
     Active Substance: TREPROSTINIL
     Dosage: 3 DOSAGE FORM, TID
     Route: 055
     Dates: start: 20250512, end: 20250512
  7. TYVASO [Concomitant]
     Active Substance: TREPROSTINIL
     Dosage: 3 DOSAGE FORM, TID
     Route: 055
     Dates: start: 20250512, end: 20250512
  8. TYVASO [Concomitant]
     Active Substance: TREPROSTINIL
     Dosage: 3 DOSAGE FORM, TID
     Dates: start: 20250512, end: 20250512

REACTIONS (1)
  - Hospitalisation [Unknown]
